FAERS Safety Report 6332811-X (Version None)
Quarter: 2009Q3

REPORT INFORMATION
  Report Type: 
  Country: None (occurrence: None)
  Receive Date: 20090828
  Receipt Date: 20090826
  Transmission Date: 20100115
  Serious: Yes (Other)
  Sender: FDA-Public Use
  Company Number: GB-TEVA-207182ISR

PATIENT
  Age: 60 Year
  Sex: Female
  Weight: 53 kg

DRUGS (5)
  1. ALENDRONIC ACID [Suspect]
     Route: 048
     Dates: start: 20060201
  2. DICLOFENAC [Suspect]
     Route: 048
     Dates: start: 20041201, end: 20081030
  3. ETANERCEPT [Suspect]
     Indication: RHEUMATOID ARTHRITIS
     Route: 058
     Dates: start: 20070110, end: 20090110
  4. LANSOPRAZOLE [Suspect]
     Route: 048
     Dates: start: 20070101, end: 20081001
  5. LEFLUNOMIDE [Suspect]
     Indication: RHEUMATOID ARTHRITIS
     Route: 048
     Dates: start: 20041201, end: 20090107

REACTIONS (3)
  - BLOOD CREATINE INCREASED [None]
  - RENAL FAILURE [None]
  - TUBULOINTERSTITIAL NEPHRITIS [None]
